FAERS Safety Report 4610024-7 (Version None)
Quarter: 2005Q1

REPORT INFORMATION
  Report Type: 
  Country: None (occurrence: None)
  Receive Date: 20050316
  Receipt Date: 20050304
  Transmission Date: 20050727
  Serious: Yes (Hospitalization)
  Sender: FDA-Public Use
  Company Number: FR-ROCHE-397393

PATIENT
  Age: 24 Year
  Sex: Female

DRUGS (4)
  1. NICARDIPINE HCL [Suspect]
     Indication: UTERINE CONTRACTIONS DURING PREGNANCY
     Route: 042
     Dates: start: 20041220, end: 20041223
  2. NICARDIPINE HCL [Suspect]
     Route: 048
     Dates: start: 20041210, end: 20041219
  3. AMOXICILLIN AND CLAVULANATE POTASSIUM [Concomitant]
     Indication: OBSTETRICAL PROCEDURE
     Dates: start: 20041222, end: 20041225
  4. BETAMETHASONE [Concomitant]
     Dates: start: 20041220, end: 20041220

REACTIONS (1)
  - PULMONARY OEDEMA [None]
